FAERS Safety Report 7449998-8 (Version None)
Quarter: 2011Q2

REPORT INFORMATION
  Report Type: 
  Country: None (occurrence: None)
  Receive Date: 20110428
  Receipt Date: 20110428
  Transmission Date: 20111010
  Serious: Yes (Hospitalization)
  Sender: FDA-Public Use
  Company Number: None

PATIENT
  Sex: Male
  Weight: 51.71 kg

DRUGS (2)
  1. CISPLATIN [Suspect]
     Dosage: 366 MG
  2. ETOPOSIDE [Suspect]
     Dosage: 1050 MG

REACTIONS (4)
  - IMPLANT SITE ABSCESS [None]
  - CATHETER SITE PAIN [None]
  - CATHETER SITE ERYTHEMA [None]
  - TENDERNESS [None]
